FAERS Safety Report 9903742 (Version 1)
Quarter: 2014Q1

REPORT INFORMATION
  Report Type: Report from Study
  Country: US (occurrence: US)
  Receive Date: 20140218
  Receipt Date: 20140218
  Transmission Date: 20141002
  Serious: Yes (Disabling)
  Sender: FDA-Public Use
  Company Number: US-ROCHE-1347562

PATIENT
  Sex: Female

DRUGS (1)
  1. AVASTIN [Suspect]
     Indication: GLIOBLASTOMA MULTIFORME
     Dosage: START DATE:3 MONTHS
     Route: 042

REACTIONS (2)
  - Blindness unilateral [Not Recovered/Not Resolved]
  - Amnesia [Not Recovered/Not Resolved]
